FAERS Safety Report 9919235 (Version 1)
Quarter: 2014Q1

REPORT INFORMATION
  Report Type: Report from Study
  Country: US (occurrence: US)
  Receive Date: 20140224
  Receipt Date: 20140224
  Transmission Date: 20141002
  Serious: No
  Sender: FDA-Public Use
  Company Number: US-JNJFOC-20140207182

PATIENT
  Sex: Female

DRUGS (2)
  1. DURAGESIC [Suspect]
     Indication: CANCER PAIN
     Dosage: 25 UG/HR   12.5 UG/HR
     Route: 062
  2. XARELTO [Concomitant]
     Route: 048

REACTIONS (1)
  - Drug dose omission [Unknown]
